FAERS Safety Report 10237487 (Version 1)
Quarter: 2014Q2

REPORT INFORMATION
  Report Type: Spontaneous
  Country: US (occurrence: US)
  Receive Date: 20140615
  Receipt Date: 20140615
  Transmission Date: 20141212
  Serious: Yes (Hospitalization)
  Sender: FDA-Public Use
  Company Number: US-BRISTOL-MYERS SQUIBB COMPANY-20964011

PATIENT
  Age: 44 Year
  Sex: Male
  Weight: 124.71 kg

DRUGS (1)
  1. ABILIFY TABS 5 MG [Suspect]
     Dates: start: 2014

REACTIONS (5)
  - Blood pressure decreased [Not Recovered/Not Resolved]
  - Hyperhidrosis [Not Recovered/Not Resolved]
  - Psychotic disorder [Not Recovered/Not Resolved]
  - Tremor [Not Recovered/Not Resolved]
  - Wrong technique in drug usage process [Unknown]
